FAERS Safety Report 5514172-9 (Version None)
Quarter: 2007Q4

REPORT INFORMATION
  Report Type: 
  Country: None (occurrence: None)
  Receive Date: 20071113
  Receipt Date: 20071101
  Transmission Date: 20080405
  Serious: Yes (Disabling)
  Sender: FDA-Public Use
  Company Number: AR-ROCHE-529129

PATIENT
  Age: 72 Year
  Sex: Female

DRUGS (2)
  1. CLONAZEPAM [Suspect]
     Indication: DEPRESSION
     Route: 048
     Dates: start: 19870101
  2. ATENOLOL [Concomitant]

REACTIONS (2)
  - HYPOTONIA [None]
  - MONOPLEGIA [None]
